FAERS Safety Report 11458689 (Version 1)
Quarter: 2015Q3

REPORT INFORMATION
  Report Type: Other
  Country: GB (occurrence: GB)
  Receive Date: 20150904
  Receipt Date: 20150904
  Transmission Date: 20151125
  Serious: Yes (Other)
  Sender: FDA-Public Use
  Company Number: GB-MYLANLABS-2015M1029028

PATIENT

DRUGS (6)
  1. AVASTIN [Suspect]
     Active Substance: BEVACIZUMAB
     Indication: GASTROOESOPHAGEAL CANCER
     Dosage: 492 MG, QOD (CYCLE 1 (21 DAYS), MOST RECENT DOSE ADMINISTERED ON 02/MAY/2013)
     Route: 042
     Dates: start: 20130502
  2. AVASTIN [Suspect]
     Active Substance: BEVACIZUMAB
     Indication: ADENOCARCINOMA GASTRIC
  3. CISPLATIN. [Suspect]
     Active Substance: CISPLATIN
     Indication: GASTRIC CANCER
     Dosage: 100 MG, Q21D (CYCLE 1 (21 DAYS), MOST RECENT DOSE ADMINISTERED ON 02/MAY/2013)
     Route: 042
     Dates: start: 20130502
  4. LANSOPRAZOLE. [Suspect]
     Active Substance: LANSOPRAZOLE
     Indication: PRODUCT USED FOR UNKNOWN INDICATION
     Route: 048
  5. EPIRUBICIN [Suspect]
     Active Substance: EPIRUBICIN
     Indication: GASTRIC CANCER
     Dosage: 88 MG, Q21D (CYCLE 1 (21 DAYS), MOST RECENT DOSE ADMINISTERED ON 02/MAY/2013)
     Route: 042
     Dates: start: 20130502
  6. XELODA [Suspect]
     Active Substance: CAPECITABINE
     Indication: GASTRIC CANCER
     Dosage: CYCLE 1 (21 DAYS), MOST RECENT DOSE ADMINISTERED ON 02/MAY/2013
     Route: 048
     Dates: start: 20130502

REACTIONS (1)
  - Axillary vein thrombosis [Not Recovered/Not Resolved]
